FAERS Safety Report 4841289-4 (Version None)
Quarter: 2005Q4

REPORT INFORMATION
  Report Type: 
  Country: None (occurrence: None)
  Receive Date: 20051130
  Receipt Date: 20051118
  Transmission Date: 20060501
  Serious: Yes (Hospitalization)
  Sender: FDA-Public Use
  Company Number: PHBS2005CH16960

PATIENT
  Age: 64 Year
  Sex: Male

DRUGS (19)
  1. AREDIA [Suspect]
     Indication: OSTEOPOROSIS
     Dosage: 4 INFUSIONS PER YEAR
     Dates: start: 20030701
  2. CELLCEPT [Suspect]
     Indication: LUNG TRANSPLANT
     Dosage: 1500 MG/D
     Route: 048
     Dates: start: 20040101
  3. RAPAMUNE [Suspect]
     Indication: LUNG TRANSPLANT
     Route: 065
     Dates: start: 20040101, end: 20041101
  4. PREDNISOLONE [Suspect]
     Dosage: 7.5 MG/D
     Route: 065
  5. NEBILET [Suspect]
     Dosage: 5 MG/D
     Route: 065
  6. PROGRAF [Suspect]
     Indication: LUNG TRANSPLANT
     Dosage: 1 MG/D
     Route: 048
     Dates: start: 20041101
  7. FOLVITE [Concomitant]
     Dosage: 15 MG/D
  8. ZITHROMAX [Concomitant]
     Dosage: 750 MG/D
  9. METOLAZONE [Concomitant]
     Dosage: 2.5 MG/D
  10. TARGOCID [Concomitant]
     Dosage: 100 MG/D
     Route: 042
  11. MARCOUMAR [Concomitant]
  12. LASIX [Concomitant]
     Dosage: 5 MG, PRN
  13. RECORMON [Concomitant]
     Dosage: 5000 IU/3 X WEEK
  14. ATROVENT [Concomitant]
  15. COLISTIN [Suspect]
  16. DIFLUCAN [Concomitant]
     Dates: end: 20041126
  17. MAGNESIOCARD [Concomitant]
     Dosage: 121 MG/D
  18. ROCALTROL [Concomitant]
     Dosage: 0.5 UG/D
  19. NEXIUM [Concomitant]
     Dosage: 20 MG/D

REACTIONS (6)
  - CARDIAC FAILURE [None]
  - CONGESTIVE CARDIOMYOPATHY [None]
  - EJECTION FRACTION DECREASED [None]
  - MITRAL VALVE INCOMPETENCE [None]
  - VENTRICULAR HYPERTROPHY [None]
  - VENTRICULAR HYPOKINESIA [None]
